FAERS Safety Report 9306852 (Version 2)
Quarter: 2013Q2

REPORT INFORMATION
  Report Type: Spontaneous
  Country: US (occurrence: US)
  Receive Date: 20130523
  Receipt Date: 20130528
  Transmission Date: 20140414
  Serious: Yes (Hospitalization, Other)
  Sender: FDA-Public Use
  Company Number: CHPA2013US008549

PATIENT
  Age: 86 Year
  Sex: Female

DRUGS (1)
  1. ALPHA-KERI MOISTURE RICH OIL [Suspect]
     Indication: THERAPEUTIC SKIN CARE TOPICAL
     Dosage: ONCE OR TWICE A DAY
     Route: 061

REACTIONS (16)
  - Loss of consciousness [Recovered/Resolved]
  - Lower limb fracture [Recovering/Resolving]
  - Road traffic accident [Recovered/Resolved]
  - Rib fracture [Recovering/Resolving]
  - Limb injury [Recovering/Resolving]
  - Intra-abdominal haematoma [Recovered/Resolved]
  - Breast cancer female [Recovered/Resolved]
  - Pain in extremity [Recovering/Resolving]
  - Gallbladder injury [Recovered/Resolved]
  - Helicobacter infection [Recovering/Resolving]
  - Abdominal pain upper [Recovering/Resolving]
  - Nausea [Recovering/Resolving]
  - Weight decreased [Recovered/Resolved]
  - Gait disturbance [Recovering/Resolving]
  - Stress [Unknown]
  - Therapeutic response unexpected [Unknown]
